FAERS Safety Report 5054977-4 (Version None)
Quarter: 2006Q3

REPORT INFORMATION
  Report Type: 
  Country: None (occurrence: None)
  Receive Date: 20060719
  Receipt Date: 20060717
  Transmission Date: 20061208
  Serious: Yes (Hospitalization)
  Sender: FDA-Public Use
  Company Number: US-GLAXOSMITHKLINE-A0612686A

PATIENT
  Sex: Female

DRUGS (6)
  1. LAMICTAL [Suspect]
     Indication: BIPOLAR DISORDER
     Dosage: 50MG PER DAY
     Route: 048
     Dates: start: 20060216, end: 20060301
  2. EFFEXOR XR [Concomitant]
  3. ADVAIR DISKUS 100/50 [Concomitant]
  4. LEXAPRO [Concomitant]
  5. THEOPHYLLINE [Concomitant]
  6. KLONOPIN [Concomitant]

REACTIONS (15)
  - ARTHRALGIA [None]
  - ASTHMA [None]
  - DIARRHOEA [None]
  - EATING DISORDER [None]
  - ENTEROCOLITIS INFECTIOUS [None]
  - ERYTHEMA [None]
  - IMMUNE SYSTEM DISORDER [None]
  - INFLAMMATION [None]
  - MOUTH ULCERATION [None]
  - PAIN [None]
  - PRURITUS [None]
  - PURPURA [None]
  - PYREXIA [None]
  - SKIN EXFOLIATION [None]
  - VAGINAL LESION [None]
